FAERS Safety Report 5875883-9 (Version None)
Quarter: 2008Q3

REPORT INFORMATION
  Report Type: 
  Country: None (occurrence: None)
  Receive Date: 20080905
  Receipt Date: 20080829
  Transmission Date: 20090109
  Serious: Yes (Death)
  Sender: FDA-Public Use
  Company Number: MSTR-NO-0809S-0055

PATIENT
  Age: 67 Year
  Sex: Male

DRUGS (3)
  1. METASTRON [Suspect]
     Indication: METASTATIC PAIN
     Dosage: SINGLE DOSE, I .V.
     Route: 042
     Dates: start: 20080215, end: 20080215
  2. ZOLEDRONIC ACID [Concomitant]
  3. ALENDRONATE SODIUM [Concomitant]

REACTIONS (2)
  - CONDITION AGGRAVATED [None]
  - PROSTATE CANCER [None]
